FAERS Safety Report 19213621 (Version 6)
Quarter: 2024Q4

REPORT INFORMATION
  Report Type: Spontaneous
  Country: CA (occurrence: CA)
  Receive Date: 20210505
  Receipt Date: 20241130
  Transmission Date: 20250115
  Serious: Yes (Life-Threatening, Hospitalization, Other)
  Sender: ALEXION PHARMACEUTICALS
  Company Number: 2021A365696

PATIENT
  Age: 52 Year

DRUGS (36)
  1. BUDESONIDE\FORMOTEROL [Interacting]
     Active Substance: BUDESONIDE\FORMOTEROL
     Indication: Nasal congestion
     Dosage: FREQUENCY: UNK
  2. BUDESONIDE\FORMOTEROL [Interacting]
     Active Substance: BUDESONIDE\FORMOTEROL
     Dosage: FREQUENCY: UNK
  3. BUDESONIDE\FORMOTEROL [Interacting]
     Active Substance: BUDESONIDE\FORMOTEROL
     Dosage: FREQUENCY: UNK
  4. BUDESONIDE\FORMOTEROL [Interacting]
     Active Substance: BUDESONIDE\FORMOTEROL
     Dosage: FREQUENCY: UNK
  5. BUDESONIDE\FORMOTEROL [Interacting]
     Active Substance: BUDESONIDE\FORMOTEROL
     Dosage: FREQUENCY: UNK
  6. BUDESONIDE\FORMOTEROL [Interacting]
     Active Substance: BUDESONIDE\FORMOTEROL
     Dosage: FREQUENCY: UNK
  7. BUDESONIDE\FORMOTEROL [Interacting]
     Active Substance: BUDESONIDE\FORMOTEROL
     Dosage: FREQUENCY: UNK
  8. BUDESONIDE\FORMOTEROL [Interacting]
     Active Substance: BUDESONIDE\FORMOTEROL
     Dosage: FREQUENCY: UNK
  9. BUDESONIDE\FORMOTEROL [Interacting]
     Active Substance: BUDESONIDE\FORMOTEROL
     Dosage: FREQUENCY: UNK
  10. BUDESONIDE\FORMOTEROL [Interacting]
     Active Substance: BUDESONIDE\FORMOTEROL
     Dosage: FREQUENCY: UNK
  11. BUDESONIDE\FORMOTEROL [Interacting]
     Active Substance: BUDESONIDE\FORMOTEROL
     Dosage: FREQUENCY: UNK
  12. BUDESONIDE\FORMOTEROL [Interacting]
     Active Substance: BUDESONIDE\FORMOTEROL
     Dosage: FREQUENCY: UNK
  13. DULOXETINE [Interacting]
     Active Substance: DULOXETINE
     Indication: Sciatica
     Route: 065
  14. DULOXETINE [Interacting]
     Active Substance: DULOXETINE
     Indication: Product used for unknown indication
  15. DULOXETINE [Interacting]
     Active Substance: DULOXETINE
     Dosage: 60 MILLIGRAM, QD
  16. DULOXETINE [Interacting]
     Active Substance: DULOXETINE
     Dosage: 60 MILLIGRAM, QD
     Route: 065
  17. DULOXETINE [Interacting]
     Active Substance: DULOXETINE
     Dosage: 30 MILLIGRAM, BID
     Route: 065
  18. DULOXETINE [Interacting]
     Active Substance: DULOXETINE
     Dosage: 30 MILLIGRAM, BID
  19. DULOXETINE [Interacting]
     Active Substance: DULOXETINE
     Dosage: 30 MILLIGRAM, QD
     Route: 065
  20. DULOXETINE [Interacting]
     Active Substance: DULOXETINE
     Dosage: 30 MILLIGRAM, QD
  21. XYLOMETAZOLINE HYDROCHLORIDE [Interacting]
     Active Substance: XYLOMETAZOLINE HYDROCHLORIDE
     Indication: Nasal congestion
     Dosage: 1 DOSAGE FORM, QD
  22. XYLOMETAZOLINE HYDROCHLORIDE [Interacting]
     Active Substance: XYLOMETAZOLINE HYDROCHLORIDE
     Indication: Product used for unknown indication
     Dosage: 1 DOSAGE FORM, QD
  23. XYLOMETAZOLINE HYDROCHLORIDE [Interacting]
     Active Substance: XYLOMETAZOLINE HYDROCHLORIDE
     Dosage: UNK UNK, QD
     Route: 065
  24. XYLOMETAZOLINE HYDROCHLORIDE [Interacting]
     Active Substance: XYLOMETAZOLINE HYDROCHLORIDE
     Dosage: UNK UNK, QD
  25. XYLOMETAZOLINE HYDROCHLORIDE [Interacting]
     Active Substance: XYLOMETAZOLINE HYDROCHLORIDE
     Dosage: 1 DOSAGE FORM, UNK
  26. XYLOMETAZOLINE HYDROCHLORIDE [Interacting]
     Active Substance: XYLOMETAZOLINE HYDROCHLORIDE
     Dosage: 1 DOSAGE FORM, UNK
  27. XYLOMETAZOLINE HYDROCHLORIDE [Interacting]
     Active Substance: XYLOMETAZOLINE HYDROCHLORIDE
     Dosage: 1 DOSAGE FORM, UNK
     Route: 065
  28. XYLOMETAZOLINE HYDROCHLORIDE [Interacting]
     Active Substance: XYLOMETAZOLINE HYDROCHLORIDE
     Dosage: 1 DOSAGE FORM, UNK
  29. XYLOMETAZOLINE HYDROCHLORIDE [Interacting]
     Active Substance: XYLOMETAZOLINE HYDROCHLORIDE
     Dosage: 1 DOSAGE FORM, QD
  30. XYLOMETAZOLINE HYDROCHLORIDE [Interacting]
     Active Substance: XYLOMETAZOLINE HYDROCHLORIDE
     Dosage: 1 DOSAGE FORM, QD
  31. XYLOMETAZOLINE HYDROCHLORIDE [Interacting]
     Active Substance: XYLOMETAZOLINE HYDROCHLORIDE
     Dosage: 1 DOSAGE FORM, QD
  32. XYLOMETAZOLINE HYDROCHLORIDE [Interacting]
     Active Substance: XYLOMETAZOLINE HYDROCHLORIDE
     Dosage: 1 DOSAGE FORM, QD
  33. ALBUTEROL [Interacting]
     Active Substance: ALBUTEROL
     Indication: Asthma
     Route: 065
  34. ALBUTEROL [Interacting]
     Active Substance: ALBUTEROL
     Indication: Product used for unknown indication
  35. ALBUTEROL [Interacting]
     Active Substance: ALBUTEROL
     Route: 065
  36. ALBUTEROL [Interacting]
     Active Substance: ALBUTEROL

REACTIONS (15)
  - Rhinorrhoea [Unknown]
  - Allergy to animal [Recovered/Resolved]
  - Cerebral artery stenosis [Recovered/Resolved]
  - Nasal mucosal disorder [Recovered/Resolved]
  - Nasal septum deviation [Recovered/Resolved]
  - Nasal turbinate hypertrophy [Recovered/Resolved]
  - Rebound nasal congestion [Recovered/Resolved]
  - Reversible cerebral vasoconstriction syndrome [Recovered/Resolved]
  - Rhinorrhoea [Recovered/Resolved]
  - Subarachnoid haemorrhage [Recovered/Resolved]
  - Thunderclap headache [Recovered/Resolved]
  - Hypertension [Recovered/Resolved]
  - Product use in unapproved indication [Recovered/Resolved]
  - Drug interaction [Recovered/Resolved]
  - Headache [Recovered/Resolved]
